FAERS Safety Report 21739812 (Version 1)
Quarter: 2022Q4

REPORT INFORMATION
  Report Type: Spontaneous
  Country: US (occurrence: US)
  Receive Date: 20221216
  Receipt Date: 20221216
  Transmission Date: 20230113
  Serious: Yes (Other)
  Sender: FDA-Public Use
  Company Number: US-MYLANLABS-2022M1140146

PATIENT
  Sex: Female

DRUGS (12)
  1. TETRACYCLINE [Suspect]
     Active Substance: TETRACYCLINE
     Indication: Neuralgia
     Dosage: UNK
     Route: 065
  2. TETRACYCLINE [Suspect]
     Active Substance: TETRACYCLINE
     Indication: Dry eye
  3. DOXYCYCLINE [Suspect]
     Active Substance: DOXYCYCLINE
     Indication: Neuralgia
     Dosage: UNK
     Route: 065
  4. DOXYCYCLINE [Suspect]
     Active Substance: DOXYCYCLINE
     Indication: Dry eye
  5. MURO 128 [Suspect]
     Active Substance: SODIUM CHLORIDE
     Indication: Neuralgia
     Dosage: UNK
     Route: 065
  6. MURO 128 [Suspect]
     Active Substance: SODIUM CHLORIDE
     Indication: Dry eye
  7. RETINOL [Suspect]
     Active Substance: RETINOL
     Indication: Neuralgia
     Dosage: UNK
     Route: 065
  8. RETINOL [Suspect]
     Active Substance: RETINOL
     Indication: Dry eye
  9. OMEGA-3 FATTY ACIDS [Suspect]
     Active Substance: OMEGA-3 FATTY ACIDS
     Indication: Neuralgia
     Dosage: UNK
     Route: 065
  10. OMEGA-3 FATTY ACIDS [Suspect]
     Active Substance: OMEGA-3 FATTY ACIDS
     Indication: Dry eye
  11. CYCLOSPORINE [Suspect]
     Active Substance: CYCLOSPORINE
     Indication: Neuralgia
     Dosage: UNK, PRESERVATIVE FREE EMULSION
     Route: 065
  12. CYCLOSPORINE [Suspect]
     Active Substance: CYCLOSPORINE
     Indication: Dry eye

REACTIONS (2)
  - Treatment failure [Unknown]
  - Off label use [Unknown]
